FAERS Safety Report 17477024 (Version 1)
Quarter: 2020Q1

REPORT INFORMATION
  Report Type: Spontaneous
  Country: US (occurrence: US)
  Receive Date: 20200229
  Receipt Date: 20200229
  Transmission Date: 20200409
  Serious: Yes (Other)
  Sender: FDA-Public Use
  Company Number: US-AUROBINDO-AUR-APL-2020-009954

PATIENT
  Sex: Male

DRUGS (3)
  1. CEFEPIME [Suspect]
     Active Substance: CEFEPIME HYDROCHLORIDE
     Indication: RAOULTELLA ORNITHINOLYTICA INFECTION
     Dosage: UNK
     Route: 065
  2. PIPERACILLIN/TAZOBACTAM [Concomitant]
     Active Substance: PIPERACILLIN SODIUM\TAZOBACTAM SODIUM
     Indication: CHOLANGITIS
     Dosage: UNK
     Route: 065
  3. ERTAPENEM. [Suspect]
     Active Substance: ERTAPENEM SODIUM
     Indication: RAOULTELLA ORNITHINOLYTICA INFECTION
     Dosage: UNK
     Route: 065

REACTIONS (2)
  - Minimum inhibitory concentration increased [Recovered/Resolved]
  - Pathogen resistance [Unknown]
